FAERS Safety Report 5714399-7 (Version None)
Quarter: 2008Q2

REPORT INFORMATION
  Report Type: 
  Country: None (occurrence: None)
  Receive Date: 20080423
  Receipt Date: 20080411
  Transmission Date: 20081010
  Serious: Yes (Hospitalization)
  Sender: FDA-Public Use
  Company Number: US-ROCHE-558497

PATIENT
  Sex: Male

DRUGS (8)
  1. PEGASYS [Suspect]
     Indication: HEPATITIS B
     Route: 065
     Dates: start: 20080123
  2. PEGASYS [Suspect]
     Route: 065
  3. RIBAVIRIN [Suspect]
     Indication: HEPATITIS B
     Route: 065
     Dates: start: 20080123
  4. LITHIUM CARBONATE [Concomitant]
  5. 1 CONCOMITANT DRUG [Concomitant]
     Dosage: DRUG REPORTED AS INHALER
  6. VERAPAMIL [Concomitant]
  7. ATIVAN [Concomitant]
  8. AMBIEN [Concomitant]

REACTIONS (1)
  - EPISTAXIS [None]
